FAERS Safety Report 14572374 (Version 2)
Quarter: 2018Q1

REPORT INFORMATION
  Report Type: Spontaneous
  Country: TW (occurrence: TW)
  Receive Date: 20180226
  Receipt Date: 20180306
  Transmission Date: 20180509
  Serious: Yes (Other)
  Sender: FDA-Public Use
  Company Number: TW-PFIZER INC-2018079420

PATIENT
  Age: 55 Year
  Sex: Female

DRUGS (4)
  1. CALCIUM FOLINATE [Suspect]
     Active Substance: LEUCOVORIN CALCIUM
     Indication: PANCREATIC CARCINOMA STAGE III
     Dosage: UNK, CYCLIC (3-MONTH COURSE OF MAINTENANCE GOFL)
  2. GEMCITABINE HYDROCHLORIDE. [Suspect]
     Active Substance: GEMCITABINE HYDROCHLORIDE
     Indication: PANCREATIC CARCINOMA STAGE III
     Dosage: UNK, CYCLIC (3-MONTH COURSE OF MAINTENANCE GOFL)
  3. OXALIPLATIN. [Suspect]
     Active Substance: OXALIPLATIN
     Indication: PANCREATIC CARCINOMA STAGE III
     Dosage: UNK, CYCLIC (3-MONTH COURSE OF MAINTENANCE GOFL)
  4. FLUOROURACIL. [Suspect]
     Active Substance: FLUOROURACIL
     Indication: PANCREATIC CARCINOMA STAGE III
     Dosage: UNK, CYCLIC (3-MONTH COURSE OF MAINTENANCE GOFL)

REACTIONS (3)
  - Anaemia [Unknown]
  - Leukopenia [Unknown]
  - Neuropathy peripheral [Unknown]

NARRATIVE: CASE EVENT DATE: 2011
